FAERS Safety Report 5901604-7 (Version None)
Quarter: 2008Q3

REPORT INFORMATION
  Report Type: 
  Country: None (occurrence: None)
  Receive Date: 20080926
  Receipt Date: 20080926
  Transmission Date: 20090109
  Serious: Yes (Other)
  Sender: FDA-Public Use
  Company Number: None

PATIENT
  Age: 24 Year
  Sex: Male
  Weight: 65.7716 kg

DRUGS (4)
  1. LUNESTA [Suspect]
     Indication: INSOMNIA
     Dosage: 1 TABLET AT BEDTIME PO
     Route: 048
  2. SERTRALINE [Concomitant]
  3. ALPRAZOLAM [Concomitant]
  4. HYDROCODONE BITARTRATE + ACETAMINOPHEN [Concomitant]

REACTIONS (6)
  - ABNORMAL DREAMS [None]
  - ANXIETY [None]
  - INSOMNIA [None]
  - MENTAL DISORDER [None]
  - NIGHTMARE [None]
  - POOR QUALITY SLEEP [None]
